FAERS Safety Report 7864774-X (Version None)
Quarter: 2011Q4

REPORT INFORMATION
  Report Type: 
  Country: None (occurrence: None)
  Receive Date: 20111028
  Receipt Date: 20111020
  Transmission Date: 20120403
  Serious: Yes (Hospitalization)
  Sender: FDA-Public Use
  Company Number: US-CELGENEUS-163-FK228-11102579

PATIENT

DRUGS (16)
  1. ZYRTEC [Concomitant]
     Dosage: 5 MILLIGRAM
     Route: 048
  2. SODIUM CHLORIDE INJ [Concomitant]
     Dosage: 500 MILLILITER
     Route: 041
  3. DEXTROSE [Concomitant]
     Dosage: 1000 MILLILITER
     Route: 041
  4. BORTEZOMIB [Suspect]
     Dosage: 1.6 MILLIGRAM/SQ. METER
     Route: 041
     Dates: start: 20111014, end: 20111014
  5. ALLOPURINOL [Concomitant]
     Dosage: 300 MILLIGRAM
     Route: 048
  6. INFLUENZA VIRUS VACCINE [Concomitant]
     Dosage: .5 MILLILITER
     Route: 030
  7. ACYCLOVIR [Concomitant]
     Dosage: 400 MILLIGRAM
     Route: 048
  8. NEXIUM [Concomitant]
     Dosage: 40 MILLIGRAM
     Route: 048
  9. ALBUTEROL [Concomitant]
     Dosage: 3 MILLILITER
     Route: 055
  10. XANAX [Concomitant]
     Dosage: .5 MILLIGRAM
     Route: 048
  11. FLEXERIL [Concomitant]
     Dosage: 10 MILLIGRAM
     Route: 048
  12. ROMIDEPSIN [Suspect]
     Dosage: 8 MILLIGRAM/SQ. METER
     Route: 041
     Dates: start: 20111014, end: 20111014
  13. DOCUSATE [Concomitant]
     Dosage: 100 MILLIGRAM
     Route: 048
  14. LEVOFLOXACIN [Concomitant]
     Dosage: 500 MILLIGRAM
     Route: 048
  15. PROCHLORPERAZINE [Concomitant]
     Dosage: 10 MILLIGRAM
     Route: 048
  16. SINGULAIR [Concomitant]
     Dosage: 10 MILLIGRAM
     Route: 048

REACTIONS (12)
  - HYPERHIDROSIS [None]
  - DIARRHOEA [None]
  - CYTOKINE RELEASE SYNDROME [None]
  - CONJUNCTIVITIS [None]
  - ORAL DYSAESTHESIA [None]
  - VOMITING [None]
  - CHILLS [None]
  - PHOTOPHOBIA [None]
  - PERIORBITAL OEDEMA [None]
  - NAUSEA [None]
  - RASH MACULAR [None]
  - HYPOTENSION [None]
